FAERS Safety Report 9036479 (Version 1)
Quarter: 2013Q1

REPORT INFORMATION
  Report Type: Spontaneous
  Country: US (occurrence: None)
  Receive Date: 20130122
  Receipt Date: 20130122
  Transmission Date: 20140127
  Serious: No
  Sender: FDA-Public Use
  Company Number: None

PATIENT
  Age: 18 Year
  Sex: Female
  Weight: 52.1 kg

DRUGS (1)
  1. FENTANYL [Suspect]
     Indication: ADENOTONSILLECTOMY
     Route: 042
     Dates: start: 20121214, end: 20121214

REACTIONS (2)
  - Delayed recovery from anaesthesia [None]
  - Product quality issue [None]
